FAERS Safety Report 17523519 (Version 4)
Quarter: 2020Q3

REPORT INFORMATION
  Report Type: Spontaneous
  Country: US (occurrence: US)
  Receive Date: 20200311
  Receipt Date: 20200928
  Transmission Date: 20201102
  Serious: Yes (Hospitalization)
  Sender: FDA-Public Use
  Company Number: US-TEVA-2020-US-1195551

PATIENT
  Age: 53 Year
  Sex: Female
  Weight: 69.85 kg

DRUGS (5)
  1. ADEMPAS [Concomitant]
     Active Substance: RIOCIGUAT
     Route: 065
  2. OPSUMIT [Concomitant]
     Active Substance: MACITENTAN
     Route: 065
  3. EPOPROSTENOL TEVA [Suspect]
     Active Substance: EPOPROSTENOL SODIUM
     Dosage: 25.5 NG PER KG PER MIN?STRENGTH OF DOSAGE FORM: 1.5MG/VIAL
     Route: 065
     Dates: start: 20191014
  4. ADCIRCA [Concomitant]
     Active Substance: TADALAFIL
     Route: 065
  5. WARFARIN [Concomitant]
     Active Substance: WARFARIN
     Route: 065

REACTIONS (11)
  - Nasopharyngitis [Unknown]
  - Influenza like illness [Unknown]
  - Headache [Unknown]
  - Blood potassium decreased [Unknown]
  - Nausea [Unknown]
  - Heart rate increased [Unknown]
  - Feeling abnormal [Unknown]
  - Malaise [Unknown]
  - Chills [Unknown]
  - Dizziness [Unknown]
  - Blood pressure systolic decreased [Unknown]

NARRATIVE: CASE EVENT DATE: 2020
